FAERS Safety Report 8892940 (Version 1)
Quarter: 2012Q4

REPORT INFORMATION
  Report Type: 
  Country: US (occurrence: US)
  Receive Date: 20121107
  Receipt Date: 20121107
  Transmission Date: 20130627
  Serious: No
  Sender: FDA-Public Use
  Company Number: US-AMGEN-USASP2011054107

PATIENT
  Sex: Female

DRUGS (1)
  1. ENBREL [Suspect]
     Indication: PSORIASIS
     Dosage: 25 mg, 2 times/wk
     Dates: start: 200810, end: 201012

REACTIONS (2)
  - Psoriasis [Not Recovered/Not Resolved]
  - Hypoaesthesia [Not Recovered/Not Resolved]
